FAERS Safety Report 7415046-9 (Version None)
Quarter: 2011Q2

REPORT INFORMATION
  Report Type: 
  Country: None (occurrence: None)
  Receive Date: 20110414
  Receipt Date: 20110412
  Transmission Date: 20111010
  Serious: Yes (Hospitalization)
  Sender: FDA-Public Use
  Company Number: FR-ROCHE-767632

PATIENT
  Age: 52 Year
  Sex: Male

DRUGS (2)
  1. PEGASYS [Suspect]
     Route: 058
  2. HYDREA [Suspect]
     Route: 048
     Dates: end: 20100901

REACTIONS (2)
  - SKIN ULCER [None]
  - CONDITION AGGRAVATED [None]
